FAERS Safety Report 7655333-2 (Version None)
Quarter: 2011Q3

REPORT INFORMATION
  Report Type: 
  Country: None (occurrence: None)
  Receive Date: 20110804
  Receipt Date: 20110720
  Transmission Date: 20111222
  Serious: Yes (Hospitalization, Other)
  Sender: FDA-Public Use
  Company Number: US-ELI_LILLY_AND_COMPANY-US201012001772

PATIENT
  Sex: Female

DRUGS (3)
  1. FORTEO [Suspect]
     Dosage: 20 UG, DAILY (1/D)
  2. FORTEO [Suspect]
     Indication: OSTEOPOROSIS
     Dosage: 20 UG, DAILY (1/D)
     Dates: start: 20101102
  3. FORTEO [Suspect]
     Dosage: 20 UG, QD

REACTIONS (7)
  - FALL [None]
  - GAIT DISTURBANCE [None]
  - ARTHRITIS [None]
  - CONTUSION [None]
  - PAIN IN EXTREMITY [None]
  - CONSTIPATION [None]
  - PAIN [None]
